FAERS Safety Report 6713268-3 (Version None)
Quarter: 2010Q2

REPORT INFORMATION
  Report Type: 
  Country: None (occurrence: None)
  Receive Date: 20100505
  Receipt Date: 20100505
  Transmission Date: 20101027
  Serious: Yes (Hospitalization)
  Sender: FDA-Public Use
  Company Number: None

PATIENT
  Sex: Male
  Weight: 56 kg

DRUGS (2)
  1. CARBOPLATIN [Suspect]
     Dosage: 528 MG
     Dates: end: 20100413
  2. ETOPOSIDE [Suspect]
     Dosage: 531 MG
     Dates: end: 20100415

REACTIONS (2)
  - PNEUMONIA [None]
  - WHITE BLOOD CELL COUNT DECREASED [None]
